FAERS Safety Report 21235114 (Version 4)
Quarter: 2023Q1

REPORT INFORMATION
  Report Type: Report from Study
  Country: CN (occurrence: None)
  Receive Date: 20220821
  Receipt Date: 20230331
  Transmission Date: 20230417
  Serious: Yes (Life-Threatening, Hospitalization)
  Sender: FDA-Public Use
  Company Number: 2021A801062

PATIENT
  Age: 66 Year
  Sex: Female

DRUGS (32)
  1. DURVALUMAB [Suspect]
     Active Substance: DURVALUMAB
     Indication: Oesophageal squamous cell carcinoma
     Route: 042
     Dates: start: 20211103, end: 20211103
  2. DURVALUMAB [Suspect]
     Active Substance: DURVALUMAB
     Indication: Oesophageal squamous cell carcinoma
     Route: 042
     Dates: start: 20211202, end: 20211202
  3. DURVALUMAB [Suspect]
     Active Substance: DURVALUMAB
     Indication: Oesophageal squamous cell carcinoma
     Route: 042
     Dates: start: 20211231, end: 20211231
  4. DURVALUMAB [Suspect]
     Active Substance: DURVALUMAB
     Indication: Oesophageal squamous cell carcinoma
     Route: 042
     Dates: start: 20220128, end: 20220128
  5. DURVALUMAB [Suspect]
     Active Substance: DURVALUMAB
     Indication: Oesophageal squamous cell carcinoma
     Route: 042
     Dates: start: 20220223, end: 20220223
  6. DURVALUMAB [Suspect]
     Active Substance: DURVALUMAB
     Indication: Oesophageal squamous cell carcinoma
     Route: 042
     Dates: start: 20220324, end: 20220324
  7. CISPLATIN [Suspect]
     Active Substance: CISPLATIN
     Indication: Oesophageal squamous cell carcinoma
     Dates: start: 20211103, end: 20211103
  8. CISPLATIN [Suspect]
     Active Substance: CISPLATIN
     Indication: Oesophageal squamous cell carcinoma
     Dates: start: 20211203, end: 20211203
  9. FLUOROURACIL [Suspect]
     Active Substance: FLUOROURACIL
     Indication: Oesophageal squamous cell carcinoma
     Dates: start: 20211104, end: 20211107
  10. FLUOROURACIL [Suspect]
     Active Substance: FLUOROURACIL
     Indication: Oesophageal squamous cell carcinoma
     Dates: start: 20211204, end: 20211208
  11. INVESTIGATIONAL PRODUCT [Suspect]
     Active Substance: INVESTIGATIONAL PRODUCT
     Indication: Oesophageal squamous cell carcinoma
  12. CAPTOPRIL [Concomitant]
     Active Substance: CAPTOPRIL
     Indication: Hypertension
     Route: 048
     Dates: start: 2001
  13. NITRENDIPINE TABLETS [Concomitant]
     Indication: Hypertension
     Route: 048
     Dates: start: 2001
  14. LACTULOSE [Concomitant]
     Active Substance: LACTULOSE
     Indication: Constipation
     Route: 048
     Dates: start: 20211105, end: 20211111
  15. OLANZAPINE [Concomitant]
     Active Substance: OLANZAPINE
     Indication: Gastrointestinal disorder
     Route: 048
     Dates: start: 20211106, end: 20211110
  16. ASCORBIC ACID [Concomitant]
     Active Substance: ASCORBIC ACID
     Indication: Dehydration
     Route: 042
     Dates: start: 20211103, end: 20211108
  17. ASCORBIC ACID [Concomitant]
     Active Substance: ASCORBIC ACID
     Indication: Hypervolaemia
     Route: 042
     Dates: start: 20211103, end: 20211108
  18. VITAMIN B6 [Concomitant]
     Active Substance: PYRIDOXINE HYDROCHLORIDE
     Indication: Hypervolaemia
     Route: 042
     Dates: start: 20211103, end: 20211108
  19. VITAMIN B6 [Concomitant]
     Active Substance: PYRIDOXINE HYDROCHLORIDE
     Indication: Dehydration
     Route: 042
     Dates: start: 20211103, end: 20211108
  20. ONDANSETRON HYDROCHLORIDE [Concomitant]
     Active Substance: ONDANSETRON HYDROCHLORIDE
     Indication: Vomiting
     Route: 048
     Dates: start: 20211103, end: 20211108
  21. ONDANSETRON HYDROCHLORIDE [Concomitant]
     Active Substance: ONDANSETRON HYDROCHLORIDE
     Indication: Nausea
     Route: 048
     Dates: start: 20211103, end: 20211108
  22. APREPITAN CAPSULES [Concomitant]
     Indication: Vomiting
     Route: 048
     Dates: start: 20211103, end: 20211108
  23. DIPHENHYDRAMINE HYDROCHLORIDE INJ [Concomitant]
     Indication: Vomiting
     Route: 030
     Dates: start: 20211103, end: 20211107
  24. METOCLOPRAMIDE HYDROCHLORIDE [Concomitant]
     Active Substance: METOCLOPRAMIDE HYDROCHLORIDE
     Indication: Vomiting
     Route: 030
     Dates: start: 20211103, end: 20211108
  25. ILAPRAZOLE SODIUM FOR INJECTION [Concomitant]
     Indication: Inhibin A
     Route: 042
     Dates: start: 20211103, end: 20211108
  26. ILAPRAZOLE SODIUM FOR INJECTION [Concomitant]
     Indication: Gastritis
     Route: 042
     Dates: start: 20211103, end: 20211108
  27. ILAPRAZOLE SODIUM FOR INJECTION [Concomitant]
     Indication: Radiation oesophagitis
     Route: 042
     Dates: start: 20211103, end: 20211108
  28. FUROSEMIDE [Concomitant]
     Active Substance: FUROSEMIDE
     Indication: Hypervolaemia
     Dosage: 20.0MG ONCE/SINGLE ADMINISTRATION
     Route: 042
     Dates: start: 20211103, end: 20211103
  29. FUROSEMIDE [Concomitant]
     Active Substance: FUROSEMIDE
     Indication: Polyuria
     Dosage: 20.0MG ONCE/SINGLE ADMINISTRATION
     Route: 042
     Dates: start: 20211103, end: 20211103
  30. TOLVAPTAN [Concomitant]
     Active Substance: TOLVAPTAN
     Indication: Hyponatraemia
     Dates: start: 20211107, end: 20211108
  31. CONCENTRATED SODIUM CHLORIDE INJECTION [Concomitant]
     Indication: Hyponatraemia
     Dates: start: 20211107, end: 20211107
  32. MANNITOL INJECTION [Concomitant]
     Indication: Hyponatraemia
     Dates: start: 20211107, end: 20211107

REACTIONS (2)
  - Hypokalaemia [Recovered/Resolved]
  - Hyponatraemia [Recovered/Resolved]

NARRATIVE: CASE EVENT DATE: 20211107
